FAERS Safety Report 10003926 (Version 1)
Quarter: 2014Q1

REPORT INFORMATION
  Report Type: Spontaneous
  Country: US (occurrence: US)
  Receive Date: 20140312
  Receipt Date: 20140312
  Transmission Date: 20141002
  Serious: Yes (Life-Threatening, Other)
  Sender: FDA-Public Use
  Company Number: PHEH2014US004876

PATIENT
  Age: 92 Year
  Sex: Female

DRUGS (2)
  1. EXELON PATCH [Suspect]
     Dosage: 9.5 MG, UNK
     Route: 062
     Dates: start: 201311, end: 20140309
  2. THYROID THERAPY [Concomitant]
     Dosage: UNK UKN, UNK

REACTIONS (5)
  - Apparent death [Unknown]
  - General physical health deterioration [Unknown]
  - Skin burning sensation [Unknown]
  - Decreased appetite [Unknown]
  - Weight decreased [Unknown]
